FAERS Safety Report 22879745 (Version 3)
Quarter: 2024Q1

REPORT INFORMATION
  Report Type: Report from Study
  Country: CO (occurrence: CO)
  Receive Date: 20230829
  Receipt Date: 20240126
  Transmission Date: 20240410
  Serious: Yes (Other)
  Sender: FDA-Public Use
  Company Number: CO-002147023-NVSC2023CO161452

PATIENT
  Sex: Female

DRUGS (7)
  1. KISQALI [Suspect]
     Active Substance: RIBOCICLIB
     Indication: Hormone receptor positive HER2 negative breast cancer
     Dosage: 3 DOSAGE FORM
     Route: 048
  2. KISQALI [Suspect]
     Active Substance: RIBOCICLIB
     Dosage: 400 MG, QD (FOR 21 DAYS)
     Route: 048
  3. KISQALI [Suspect]
     Active Substance: RIBOCICLIB
     Dosage: UNK
     Route: 048
  4. KISQALI [Suspect]
     Active Substance: RIBOCICLIB
     Dosage: 400 MG, QD
     Route: 048
     Dates: start: 20220901, end: 20231228
  5. FEMARA [Suspect]
     Active Substance: LETROZOLE
     Indication: Breast cancer
     Dosage: 2.5 MG, QD
     Route: 048
  6. FULVESTRANT [Concomitant]
     Active Substance: FULVESTRANT
     Indication: Product used for unknown indication
     Dosage: UNK, QMO
     Route: 065
  7. VITAMIN D3 [Concomitant]
     Active Substance: CHOLECALCIFEROL
     Indication: Anticoagulant therapy
     Dosage: UNK
     Route: 065

REACTIONS (21)
  - Lymphadenopathy [Unknown]
  - Neutropenia [Unknown]
  - Metastasis [Unknown]
  - Breast cancer recurrent [Unknown]
  - Metastases to breast [Unknown]
  - Metastases to bone [Unknown]
  - Discomfort [Unknown]
  - Drug intolerance [Recovering/Resolving]
  - Decreased immune responsiveness [Recovering/Resolving]
  - Skin discolouration [Unknown]
  - Pain [Unknown]
  - Pulmonary mass [Unknown]
  - Product distribution issue [Unknown]
  - Osteoarthritis [Unknown]
  - Malaise [Unknown]
  - Memory impairment [Recovering/Resolving]
  - Arthralgia [Unknown]
  - Constipation [Unknown]
  - Anaemia [Unknown]
  - Haemoglobin decreased [Unknown]
  - Fatigue [Unknown]
